FAERS Safety Report 5504281-2 (Version None)
Quarter: 2007Q4

REPORT INFORMATION
  Report Type: 
  Country: None (occurrence: None)
  Receive Date: 20071101
  Receipt Date: 20071018
  Transmission Date: 20080405
  Serious: Yes (Life-Threatening, Hospitalization, Other)
  Sender: FDA-Public Use
  Company Number: GB-RANBAXY-2007RR-07945

PATIENT

DRUGS (3)
  1. FLECAINIDE ACETATE [Suspect]
     Indication: TACHYCARDIA
     Dosage: 100 MG, BID
     Route: 042
  2. BENDROFLUMETHIAZIDE [Suspect]
     Indication: HYPERTENSION
     Dosage: 2.5 MG, QD
     Route: 048
  3. FELODIPINE [Concomitant]
     Indication: HYPERTENSION

REACTIONS (10)
  - ARRHYTHMIA [None]
  - ASTHENIA [None]
  - CARDIOTOXICITY [None]
  - DRUG INTERACTION [None]
  - ELECTROCARDIOGRAM QRS COMPLEX PROLONGED [None]
  - ELECTROLYTE IMBALANCE [None]
  - FATIGUE [None]
  - HYPOKALAEMIA [None]
  - HYPONATRAEMIA [None]
  - SYNCOPE [None]
